FAERS Safety Report 5118478-7 (Version None)
Quarter: 2006Q4

REPORT INFORMATION
  Report Type: 
  Country: None (occurrence: None)
  Receive Date: 20061002
  Receipt Date: 20060919
  Transmission Date: 20070319
  Serious: Yes (Hospitalization)
  Sender: FDA-Public Use
  Company Number: DE-PURDUE-DEU_2006_0002480

PATIENT
  Age: 51 Year
  Sex: Female
  Weight: 96 kg

DRUGS (6)
  1. OXY/NALOXONE VS OXY/PLACEBO CR TAB [Suspect]
     Indication: BACK PAIN
     Dosage: 20 MG, DAILY
     Route: 048
     Dates: start: 20060906, end: 20060906
  2. OXY/NALOXONE VS OXY/PLACEBO CR TAB [Suspect]
     Dosage: 50 MG, DAILY
     Route: 048
     Dates: start: 20060907
  3. AVCOXIA [Concomitant]
  4. TETRAZEPAM [Concomitant]
  5. RAMIPRIL [Concomitant]
  6. HYDROCHLOROTHIAZDE TAB [Concomitant]

REACTIONS (1)
  - GASTROINTESTINAL HAEMORRHAGE [None]
